FAERS Safety Report 9245237 (Version 1)
Quarter: 2013Q1

REPORT INFORMATION
  Report Type: Spontaneous
  Country: US (occurrence: None)
  Receive Date: 20121130
  Receipt Date: 20121130
  Transmission Date: 20140127
  Serious: Yes (Other)
  Sender: FDA-Public Use
  Company Number: PHEH2012US010321

PATIENT
  Age: 78 Year
  Sex: Female

DRUGS (8)
  1. TEKTURNA (ALISKIREN) [Suspect]
  2. ENALAPRIL [Concomitant]
  3. BYSTOLIC (NEBIVOLOL HYDROCHLORIDE) [Concomitant]
  4. VYTORIN (EZETIMIBE, SIMVASTATIN) [Concomitant]
  5. MAGNESIUM (MAGNESIUM) [Concomitant]
  6. PROTONIX (PANTOPRAZOLE) [Concomitant]
  7. ASPIRIN (ACETYLSALIYCLIC ACID) [Concomitant]
  8. FOLTX (CYANOCOBALAMIN, FOLIC ACID, PYRIDOXINE) [Concomitant]

REACTIONS (1)
  - Hypertension [None]
